FAERS Safety Report 6666717-3 (Version None)
Quarter: 2010Q1

REPORT INFORMATION
  Report Type: 
  Country: None (occurrence: None)
  Receive Date: 20100331
  Receipt Date: 20100322
  Transmission Date: 20100710
  Serious: Yes (Hospitalization)
  Sender: FDA-Public Use
  Company Number: 543165

PATIENT
  Age: 12 Year
  Sex: Male

DRUGS (9)
  1. METHOTREXATE [Suspect]
     Indication: B PRECURSOR TYPE ACUTE LEUKAEMIA
     Dosage: INTRATHECAL
     Route: 037
  2. METHOTREXATE [Suspect]
     Indication: B PRECURSOR TYPE ACUTE LEUKAEMIA
     Dosage: INTRAVENOUS
     Route: 042
  3. VINCRISTINE SULFATE [Concomitant]
  4. DOXORUBICIN HCL [Concomitant]
  5. DEXAMETHASONE [Concomitant]
  6. (PEGASPARGASE) [Concomitant]
  7. CYCLOPHOSPHAMIDE [Concomitant]
  8. CYTARABINE [Concomitant]
  9. THIOGUANINE [Concomitant]

REACTIONS (4)
  - BLOOD HOMOCYSTEINE INCREASED [None]
  - INTRACRANIAL VENOUS SINUS THROMBOSIS [None]
  - NEUROLOGICAL DECOMPENSATION [None]
  - NEUROTOXICITY [None]
